FAERS Safety Report 12102373 (Version 1)
Quarter: 2016Q1

REPORT INFORMATION
  Report Type: Other
  Country: US (occurrence: US)
  Receive Date: 20160222
  Receipt Date: 20160222
  Transmission Date: 20160526
  Serious: No
  Sender: FDA-Public Use
  Company Number: US-ACORDA-ACO_112123_2015

PATIENT
  Age: 65 Year
  Sex: Female

DRUGS (1)
  1. AMPYRA [Suspect]
     Active Substance: DALFAMPRIDINE
     Indication: BALANCE DISORDER
     Dosage: 10 MG, Q 12 HRS (1AM AND 1 PM)
     Route: 048
     Dates: start: 200909

REACTIONS (2)
  - Therapeutic response unexpected [Unknown]
  - Insomnia [Unknown]

NARRATIVE: CASE EVENT DATE: 201002
